FAERS Safety Report 25014840 (Version 1)
Quarter: 2025Q1

REPORT INFORMATION
  Report Type: Spontaneous
  Country: US (occurrence: US)
  Receive Date: 20250226
  Receipt Date: 20250226
  Transmission Date: 20250409
  Serious: Yes (Disabling, Other)
  Sender: GILEAD
  Company Number: US-GILEAD-2025-0705445

PATIENT
  Sex: Male

DRUGS (2)
  1. LENACAPAVIR [Suspect]
     Active Substance: LENACAPAVIR
     Indication: HIV infection
     Dosage: 600 MG, QD (TAKE 2 TABLETS BY MOUTH 1 TIME A DAY ON DAY 1 AND DAY 2)
     Route: 048
     Dates: start: 20230728
  2. LENACAPAVIR [Suspect]
     Active Substance: LENACAPAVIR
     Route: 065

REACTIONS (2)
  - Pneumonia [Not Recovered/Not Resolved]
  - Influenza [Not Recovered/Not Resolved]
